FAERS Safety Report 5740987-8 (Version None)
Quarter: 2008Q2

REPORT INFORMATION
  Report Type: 
  Country: None (occurrence: None)
  Receive Date: 20080516
  Receipt Date: 20080509
  Transmission Date: 20081010
  Serious: Yes (Death)
  Sender: FDA-Public Use
  Company Number: US-PFIZER INC-2008032269

PATIENT
  Sex: Male
  Weight: 86.2 kg

DRUGS (1)
  1. CHANTIX [Suspect]
     Indication: SMOKING CESSATION THERAPY

REACTIONS (19)
  - ANXIETY [None]
  - CHRONIC LYMPHOCYTIC LEUKAEMIA [None]
  - COMPLETED SUICIDE [None]
  - DEPRESSED MOOD [None]
  - DEPRESSION [None]
  - DISTURBANCE IN ATTENTION [None]
  - DIZZINESS [None]
  - EAR INFECTION [None]
  - ERYTHEMA [None]
  - FEELING JITTERY [None]
  - HYPERCHOLESTEROLAEMIA [None]
  - HYPERTENSION [None]
  - NAUSEA [None]
  - PROSTATOMEGALY [None]
  - RHINITIS ALLERGIC [None]
  - SINUS DISORDER [None]
  - TINNITUS [None]
  - TOTAL LUNG CAPACITY DECREASED [None]
  - WEIGHT [None]
